FAERS Safety Report 9917165 (Version 1)
Quarter: 2014Q1

REPORT INFORMATION
  Report Type: Spontaneous
  Country: US (occurrence: US)
  Receive Date: 20140221
  Receipt Date: 20140221
  Transmission Date: 20141002
  Serious: Yes (Hospitalization, Other)
  Sender: FDA-Public Use
  Company Number: US-GILEAD-2012-0055330

PATIENT
  Age: 48 Year
  Sex: Male

DRUGS (4)
  1. COMPLERA [Suspect]
     Indication: HIV TEST POSITIVE
     Dosage: UNK
     Dates: start: 201203
  2. LEXAPRO [Concomitant]
     Indication: DEPRESSION
     Dosage: UNK
  3. WELLBUTRIN [Concomitant]
     Indication: DEPRESSION
     Dosage: UNK
  4. VALTREX [Concomitant]
     Indication: HERPES ZOSTER
     Dosage: UNK

REACTIONS (1)
  - Immune reconstitution inflammatory syndrome [Recovered/Resolved]
